FAERS Safety Report 7979732-4 (Version None)
Quarter: 2011Q4

REPORT INFORMATION
  Report Type: 
  Country: None (occurrence: None)
  Receive Date: 20111214
  Receipt Date: 20111213
  Transmission Date: 20120403
  Serious: Yes (Death)
  Sender: FDA-Public Use
  Company Number: EC-ROCHE-1021591

PATIENT
  Age: 81 Year
  Sex: Female

DRUGS (1)
  1. IBANDRONATE SODIUM [Suspect]
     Indication: OSTEOPOROSIS
     Route: 042

REACTIONS (1)
  - CARDIO-RESPIRATORY ARREST [None]
